FAERS Safety Report 7337714-X (Version None)
Quarter: 2011Q1

REPORT INFORMATION
  Report Type: 
  Country: None (occurrence: None)
  Receive Date: 20110308
  Receipt Date: 20110225
  Transmission Date: 20110831
  Serious: Yes (Other)
  Sender: FDA-Public Use
  Company Number: US-SANOFI-AVENTIS-2011SA012519

PATIENT
  Age: 48 Year
  Sex: Male

DRUGS (9)
  1. LEUCOVORIN CALCIUM [Suspect]
     Indication: COLON CANCER
     Route: 042
     Dates: start: 20101208, end: 20101208
  2. FLUOROURACIL [Suspect]
     Route: 042
     Dates: start: 20110101, end: 20110101
  3. LEUCOVORIN CALCIUM [Suspect]
     Route: 042
     Dates: start: 20110101, end: 20110101
  4. ELOXATIN [Suspect]
     Route: 041
     Dates: start: 20110101, end: 20110101
  5. FLUOROURACIL [Suspect]
     Route: 042
     Dates: start: 20110101, end: 20110101
  6. ELOXATIN [Suspect]
     Route: 041
     Dates: start: 20110101, end: 20110101
  7. LEUCOVORIN CALCIUM [Suspect]
     Route: 042
     Dates: start: 20110101, end: 20110101
  8. ELOXATIN [Suspect]
     Indication: COLON CANCER
     Route: 041
     Dates: start: 20101208, end: 20101208
  9. FLUOROURACIL [Suspect]
     Indication: COLON CANCER
     Route: 042
     Dates: start: 20101208, end: 20101208

REACTIONS (3)
  - PERIPHERAL MOTOR NEUROPATHY [None]
  - TREMOR [None]
  - COGWHEEL RIGIDITY [None]
